FAERS Safety Report 26165950 (Version 1)
Quarter: 2025Q4

REPORT INFORMATION
  Report Type: Report from Study
  Country: EU (occurrence: EU)
  Receive Date: 20251216
  Receipt Date: 20251216
  Transmission Date: 20260118
  Serious: Yes (Other)
  Sender: ABBVIE
  Company Number: EU-ABBVIE-6571437

PATIENT
  Age: 63 Year
  Sex: Female
  Weight: 67 kg

DRUGS (2)
  1. CARBIDOPA\LEVODOPA [Suspect]
     Active Substance: CARBIDOPA\LEVODOPA
     Indication: Parkinson^s disease
     Dosage: MD: 8.0ML ?CR: 3.0ML/H ?ED: 2.5ML
     Route: 050
     Dates: start: 20221023
  2. CARBIDOPA\LEVODOPA [Suspect]
     Active Substance: CARBIDOPA\LEVODOPA
     Dosage: MD: 8.0ML ?CR: 3.0ML/H ?ED: 2.5ML
     Route: 050

REACTIONS (2)
  - Knee arthroplasty [Recovering/Resolving]
  - Stoma site pain [Recovered/Resolved]

NARRATIVE: CASE EVENT DATE: 20251203
